FAERS Safety Report 26175898 (Version 2)
Quarter: 2025Q4

REPORT INFORMATION
  Report Type: Spontaneous
  Country: US (occurrence: US)
  Receive Date: 20251218
  Receipt Date: 20251224
  Transmission Date: 20260118
  Serious: Yes (Other)
  Sender: APELLIS PHARMACEUTICALS
  Company Number: US-APELLIS-2025-APL-0002427

PATIENT

DRUGS (11)
  1. SYFOVRE [Suspect]
     Active Substance: PEGCETACOPLAN
     Indication: Dry age-related macular degeneration
     Dosage: UNKNOWN
     Route: 031
  2. ATORVASTATIN CALCIUM [Concomitant]
     Active Substance: ATORVASTATIN CALCIUM
     Indication: Product used for unknown indication
     Dosage: 20 MG ORAL TABLET
  3. LEVOTHYROXINE SODIUM [Concomitant]
     Active Substance: LEVOTHYROXINE SODIUM
     Indication: Product used for unknown indication
     Dosage: 137 MCG ORAL TABLET
  4. COOPER [Concomitant]
     Indication: Product used for unknown indication
     Dosage: 2 MG
  5. FOLIC ACID [Concomitant]
     Active Substance: FOLIC ACID
     Indication: Product used for unknown indication
     Dosage: 40 MG
  6. Prowhey bariatric [Concomitant]
     Indication: Product used for unknown indication
  7. DIAZEPAM [Concomitant]
     Active Substance: DIAZEPAM
     Indication: Product used for unknown indication
     Dosage: PRN
  8. MINERALS\VITAMINS [Concomitant]
     Active Substance: MINERALS\VITAMINS
     Indication: Product used for unknown indication
     Dosage: 250-90-40-1 MG CAPSULE: 1TABLET TWICE A DAY, TABLET, DURATION: 2 1 TABLET BID.
  9. CALCIUM [Concomitant]
     Active Substance: CALCIUM
  10. EYLEA [Concomitant]
     Active Substance: AFLIBERCEPT
     Indication: Neovascular age-related macular degeneration
  11. EYLEA [Concomitant]
     Active Substance: AFLIBERCEPT
     Indication: Choroidal neovascularisation

REACTIONS (14)
  - Uveitis [Unknown]
  - Neovascular age-related macular degeneration [Unknown]
  - Choroidal neovascularisation [Unknown]
  - Vitritis [Unknown]
  - Dry age-related macular degeneration [Unknown]
  - Retinal degeneration [Unknown]
  - Retinal degeneration [Unknown]
  - Vitreous detachment [Unknown]
  - Vitreous detachment [Unknown]
  - Disease progression [Unknown]
  - Eye complication associated with device [Unknown]
  - Pterygium [Unknown]
  - Fall [Unknown]
  - Rib fracture [Unknown]

NARRATIVE: CASE EVENT DATE: 20251119
